FAERS Safety Report 6444374-9 (Version None)
Quarter: 2009Q4

REPORT INFORMATION
  Report Type: 
  Country: None (occurrence: None)
  Receive Date: 20091118
  Receipt Date: 20091113
  Transmission Date: 20100525
  Serious: Yes (Death, Hospitalization)
  Sender: FDA-Public Use
  Company Number: BR-BRISTOL-MYERS SQUIBB COMPANY-14855845

PATIENT
  Age: 28 Year
  Sex: Female

DRUGS (1)
  1. QUESTRAN [Suspect]
     Route: 048
     Dates: start: 20090101, end: 20090719

REACTIONS (3)
  - DEATH [None]
  - DECREASED APPETITE [None]
  - VOMITING [None]
